FAERS Safety Report 7649874-1 (Version None)
Quarter: 2011Q3

REPORT INFORMATION
  Report Type: 
  Country: None (occurrence: None)
  Receive Date: 20110802
  Receipt Date: 20110716
  Transmission Date: 20111222
  Serious: Yes (Other)
  Sender: FDA-Public Use
  Company Number: PHHY2011CA64655

PATIENT
  Sex: Female

DRUGS (1)
  1. TOBI [Suspect]

REACTIONS (6)
  - MALAISE [None]
  - CHEST DISCOMFORT [None]
  - INFECTIVE PULMONARY EXACERBATION OF CYSTIC FIBROSIS [None]
  - DIZZINESS [None]
  - NAUSEA [None]
  - COUGH [None]
